FAERS Safety Report 24459383 (Version 1)
Quarter: 2024Q4

REPORT INFORMATION
  Report Type: Report from Study
  Country: CA (occurrence: CA)
  Receive Date: 20241018
  Receipt Date: 20241018
  Transmission Date: 20250115
  Serious: No
  Sender: ROCHE
  Company Number: CA-ROCHE-3529473

PATIENT
  Age: 57 Year
  Sex: Female
  Weight: 79.4 kg

DRUGS (15)
  1. RITUXAN [Suspect]
     Active Substance: RITUXIMAB
     Indication: Rheumatoid arthritis
     Dosage: DAY 1, 15 NO PIRS AVAILABLE
     Route: 041
     Dates: start: 20190830, end: 20240412
  2. ACETAMINOPHEN [Concomitant]
     Active Substance: ACETAMINOPHEN
     Dates: start: 20201014
  3. ADVIL [Concomitant]
     Active Substance: IBUPROFEN
  4. ATACAND [Concomitant]
     Active Substance: CANDESARTAN CILEXETIL
  5. CODEINE [Concomitant]
     Active Substance: CODEINE
  6. DIPHENHYDRAMINE [Concomitant]
     Active Substance: DIPHENHYDRAMINE
     Dates: start: 20201014
  7. FOLIC ACID [Concomitant]
     Active Substance: FOLIC ACID
  8. HYDROCHLOROTHIAZIDE [Concomitant]
     Active Substance: HYDROCHLOROTHIAZIDE
  9. LOSEC [Concomitant]
     Active Substance: OMEPRAZOLE
  10. METHOTREXATE [Concomitant]
     Active Substance: METHOTREXATE
     Route: 048
  11. METHYLPREDNISOLONE [Concomitant]
     Active Substance: METHYLPREDNISOLONE
     Route: 042
     Dates: start: 20201014
  12. PREDNISONE [Concomitant]
     Active Substance: PREDNISONE
  13. SULINDAC [Concomitant]
     Active Substance: SULINDAC
  14. SYNTHROID [Concomitant]
     Active Substance: LEVOTHYROXINE SODIUM
  15. POTASSIUM [Concomitant]
     Active Substance: POTASSIUM

REACTIONS (5)
  - Drug hypersensitivity [Unknown]
  - Blood potassium decreased [Unknown]
  - Vitamin D decreased [Unknown]
  - Thyroid disorder [Unknown]
  - Drug hypersensitivity [Unknown]
